FAERS Safety Report 9308395 (Version 1)
Quarter: 2013Q2

REPORT INFORMATION
  Report Type: Spontaneous
  Country: DE (occurrence: DE)
  Receive Date: 20130524
  Receipt Date: 20130524
  Transmission Date: 20140414
  Serious: Yes (Other)
  Sender: FDA-Public Use
  Company Number: DE-TEVA-406911GER

PATIENT
  Age: 27 Year
  Sex: Male

DRUGS (3)
  1. CLINDAMYCIN-RATIOPHARM 600 MG FILMTABLETTEN [Suspect]
     Indication: WISDOM TEETH REMOVAL
     Dosage: 900 MILLIGRAM DAILY;
     Route: 048
     Dates: start: 20130516, end: 20130516
  2. CLINDAMYCIN-RATIOPHARM 600 MG FILMTABLETTEN [Suspect]
     Route: 048
     Dates: start: 20130517, end: 20130519
  3. IBUPROFEN 600 MG [Concomitant]

REACTIONS (2)
  - Oropharyngeal blistering [Unknown]
  - Gingival blister [Unknown]
